FAERS Safety Report 8820501 (Version 1)
Quarter: 2012Q4

REPORT INFORMATION
  Report Type: 
  Country: US (occurrence: US)
  Receive Date: 20121002
  Receipt Date: 20121002
  Transmission Date: 20130627
  Serious: No
  Sender: FDA-Public Use
  Company Number: US-COVIDIEN/TYCO HEALTHCARE/MALLINCKRODT-T201102362

PATIENT
  Age: 49 Year
  Sex: Male

DRUGS (9)
  1. EXALGO EXTENDED RELEASE [Suspect]
     Indication: NEUROPATHY PERIPHERAL
     Dosage: 32 mg, UNK
     Dates: start: 20101117, end: 20101123
  2. EXALGO EXTENDED RELEASE [Suspect]
     Dosage: 40 mg, UNK
     Dates: start: 20101123, end: 20110113
  3. OPANA IR [Concomitant]
     Indication: NEURALGIA
     Dosage: 10 mg, tid
     Dates: start: 201005
  4. OPANA ER [Concomitant]
     Indication: NEURALGIA
     Dosage: 40 mg, bid
     Dates: start: 201005
  5. SOMA [Concomitant]
     Indication: MUSCLE SPASMS
     Dosage: 350 mg, tid
     Dates: start: 2009
  6. MUCINEX [Concomitant]
     Indication: REITER^S SYNDROME
     Dosage: 2 tabs
     Dates: start: 20101102
  7. POTASSIUM [Concomitant]
     Indication: HYPOKALAEMIA
     Dosage: 2 tabs
     Dates: start: 2007
  8. VOLTAREN                           /00372301/ [Concomitant]
     Indication: NEURALGIA
     Dosage: 4 g, prn
     Dates: start: 20100630
  9. PENNSAID [Concomitant]
     Indication: NEURALGIA
     Dosage: 1.5 %, prn
     Dates: start: 20100630

REACTIONS (2)
  - Influenza [Recovered/Resolved]
  - Constipation [Recovered/Resolved]
